FAERS Safety Report 15867883 (Version 3)
Quarter: 2019Q2

REPORT INFORMATION
  Report Type: Spontaneous
  Country: US (occurrence: US)
  Receive Date: 20190125
  Receipt Date: 20190411
  Transmission Date: 20190711
  Serious: Yes (Other)
  Sender: FDA-Public Use
  Company Number: US-PFIZER INC-2019032736

PATIENT
  Age: 50 Year
  Sex: Female

DRUGS (1)
  1. PRISTIQ EXTENDED-RELEASE [Suspect]
     Active Substance: DESVENLAFAXINE SUCCINATE
     Dosage: 100 MG, 1X/DAY (2 TABLETS (100MG) ONCE IN THE MORNING)
     Route: 048

REACTIONS (3)
  - Mania [Unknown]
  - Depression [Unknown]
  - Bipolar disorder [Unknown]
